FAERS Safety Report 15934053 (Version 1)
Quarter: 2019Q1

REPORT INFORMATION
  Report Type: Spontaneous
  Country: US (occurrence: US)
  Receive Date: 20190207
  Receipt Date: 20190207
  Transmission Date: 20190417
  Serious: No
  Sender: FDA-Public Use
  Company Number: US-TEVA-2019-US-1008639

PATIENT
  Sex: Female
  Weight: 68 kg

DRUGS (4)
  1. MAGNESIUM [Concomitant]
     Active Substance: MAGNESIUM
  2. AJOVY [Suspect]
     Active Substance: FREMANEZUMAB-VFRM
     Indication: MIGRAINE
     Dates: start: 20181227
  3. CALMS FORTE [Concomitant]
  4. BOTOX [Concomitant]
     Active Substance: ONABOTULINUMTOXINA
     Indication: MIGRAINE

REACTIONS (5)
  - Dizziness postural [Unknown]
  - Hyperhidrosis [Unknown]
  - Hot flush [Unknown]
  - Headache [Unknown]
  - Dizziness [Unknown]
